FAERS Safety Report 12429395 (Version 1)
Quarter: 2016Q2

REPORT INFORMATION
  Report Type: Spontaneous
  Country: NL (occurrence: NL)
  Receive Date: 20160602
  Receipt Date: 20160602
  Transmission Date: 20160815
  Serious: Yes (Other)
  Sender: FDA-Public Use
  Company Number: NL-JNJFOC-20160520769

PATIENT
  Age: 6 Decade
  Sex: Male
  Weight: 79.9 kg

DRUGS (5)
  1. LEVOTHYROXINE. [Concomitant]
     Active Substance: LEVOTHYROXINE
     Indication: HYPOTHYROIDISM
     Route: 048
  2. RYTMONORM [Concomitant]
     Active Substance: PROPAFENONE
     Indication: CARDIAC DISORDER
     Route: 048
  3. CARBASALAATCALCIUM [Concomitant]
     Active Substance: CARBASALATE
     Indication: CARDIAC DISORDER
     Route: 048
  4. VALSARTAN. [Concomitant]
     Active Substance: VALSARTAN
     Indication: CARDIAC DISORDER
     Route: 048
  5. STELARA [Suspect]
     Active Substance: USTEKINUMAB
     Indication: PSORIASIS
     Route: 058
     Dates: start: 201402

REACTIONS (2)
  - Ankle fracture [Not Recovered/Not Resolved]
  - Bone formation decreased [Not Recovered/Not Resolved]

NARRATIVE: CASE EVENT DATE: 2016
